FAERS Safety Report 9065070 (Version 1)
Quarter: 2013Q1

REPORT INFORMATION
  Report Type: Spontaneous
  Country: TW (occurrence: TW)
  Receive Date: 20130128
  Receipt Date: 20130128
  Transmission Date: 20140127
  Serious: Yes (Other)
  Sender: FDA-Public Use
  Company Number: TW-JNJFOC-20130111223

PATIENT
  Sex: Male

DRUGS (1)
  1. HALDOL [Suspect]
     Indication: CONVULSION
     Route: 065

REACTIONS (4)
  - Tachypnoea [Unknown]
  - Emotional disorder [Unknown]
  - Pollakiuria [Unknown]
  - Off label use [Unknown]
